FAERS Safety Report 4731732-3 (Version None)
Quarter: 2005Q3

REPORT INFORMATION
  Report Type: 
  Country: None (occurrence: None)
  Receive Date: 20050802
  Receipt Date: 20050725
  Transmission Date: 20060218
  Serious: Yes (Other)
  Sender: FDA-Public Use
  Company Number: PHBS2005BR10982

PATIENT
  Age: 74 Year
  Sex: Female
  Weight: 64 kg

DRUGS (5)
  1. GENTEAL (NVO) [Suspect]
     Indication: DRY EYE
     Dosage: UNK, PRN
  2. CAPTOPRIL [Concomitant]
     Indication: HYPERTENSION
     Dosage: 50 MG, BID
     Route: 048
  3. ATENOLOL [Concomitant]
     Indication: HYPERTENSION
     Dosage: 50 MG, BID
     Route: 048
  4. ATENSINA [Concomitant]
     Indication: HYPERTENSION
     Dosage: 150 MG, BID
     Route: 048
  5. DIATRIL [Concomitant]
     Dosage: 5 MG, QD
     Route: 048

REACTIONS (1)
  - HYPERTENSION [None]
